FAERS Safety Report 8909923 (Version 1)
Quarter: 2012Q4

REPORT INFORMATION
  Report Type: 
  Country: BR (occurrence: BR)
  Receive Date: 20121115
  Receipt Date: 20121115
  Transmission Date: 20130627
  Serious: Yes (Other)
  Sender: FDA-Public Use
  Company Number: BR-PFIZER INC-2012282302

PATIENT
  Age: 59 Year
  Sex: Female

DRUGS (5)
  1. DETRUSITOL LA [Suspect]
     Indication: OVERACTIVE BLADDER
     Dosage: 1 capsule 4 mg daily
     Route: 048
     Dates: start: 2008
  2. DETRUSITOL LA [Suspect]
     Indication: BLADDER PAIN
  3. LIPITOR [Concomitant]
     Indication: CHOLESTEROL
     Dosage: 1 tablet of 40 mg daily
     Dates: start: 2002
  4. VESICARE [Concomitant]
     Indication: OVERACTIVE BLADDER
  5. VESICARE [Concomitant]
     Indication: BLADDER PAIN

REACTIONS (2)
  - Diverticulum intestinal [Unknown]
  - Off label use [Unknown]
